FAERS Safety Report 15728493 (Version 2)
Quarter: 2018Q4

REPORT INFORMATION
  Report Type: Spontaneous
  Country: JP (occurrence: JP)
  Receive Date: 20181217
  Receipt Date: 20181224
  Transmission Date: 20190205
  Serious: Yes (Other)
  Sender: FDA-Public Use
  Company Number: PHJP2018JP020669

PATIENT
  Age: 61 Year
  Sex: Female

DRUGS (5)
  1. TASIGNA [Suspect]
     Active Substance: NILOTINIB
     Indication: CHRONIC MYELOID LEUKAEMIA
     Dosage: 800 MG, QD
     Route: 048
  2. TASIGNA [Suspect]
     Active Substance: NILOTINIB
     Dosage: 150 MG, QD
     Route: 048
  3. TASIGNA [Suspect]
     Active Substance: NILOTINIB
     Dosage: 600 MG, QD
     Route: 048
  4. TASIGNA [Suspect]
     Active Substance: NILOTINIB
     Dosage: 400 MG, QD
     Route: 048
  5. TASIGNA [Suspect]
     Active Substance: NILOTINIB
     Dosage: 300 MG, QD
     Route: 048

REACTIONS (10)
  - Pleural effusion [Recovered/Resolved]
  - Erythema [Recovered/Resolved]
  - Diabetes mellitus [Not Recovered/Not Resolved]
  - Hair disorder [Not Recovered/Not Resolved]
  - Eyelid oedema [Recovered/Resolved]
  - Liver disorder [Recovered/Resolved]
  - Papule [Not Recovered/Not Resolved]
  - Sudden hearing loss [Recovered/Resolved]
  - Hyperglycaemia [Not Recovered/Not Resolved]
  - Alopecia [Recovered/Resolved]
